FAERS Safety Report 24370586 (Version 6)
Quarter: 2024Q4

REPORT INFORMATION
  Report Type: Spontaneous
  Country: US (occurrence: US)
  Receive Date: 20240927
  Receipt Date: 20241211
  Transmission Date: 20250115
  Serious: Yes (Other)
  Sender: ASTELLAS
  Company Number: US-ASTELLAS-2024-AER-008081

PATIENT
  Age: 85 Year
  Sex: Male

DRUGS (20)
  1. IZERVAY [Suspect]
     Active Substance: AVACINCAPTAD PEGOL SODIUM
     Indication: Dry age-related macular degeneration
     Dosage: LEFT EYE
     Dates: start: 20240517, end: 20240517
  2. IZERVAY [Suspect]
     Active Substance: AVACINCAPTAD PEGOL SODIUM
     Dosage: LEFT EYE
     Dates: start: 20240617, end: 20240617
  3. IZERVAY [Suspect]
     Active Substance: AVACINCAPTAD PEGOL SODIUM
     Dosage: LEFT EYE
     Dates: start: 20240729, end: 20240729
  4. IZERVAY [Suspect]
     Active Substance: AVACINCAPTAD PEGOL SODIUM
     Dosage: LEFT EYE
     Dates: start: 20240909, end: 20240909
  5. TAMSULOSIN [Concomitant]
     Active Substance: TAMSULOSIN
     Indication: Product used for unknown indication
     Route: 065
  6. AVASTIN [Concomitant]
     Active Substance: BEVACIZUMAB
     Indication: Neovascular age-related macular degeneration
     Dosage: RIGHT EYE
     Route: 065
     Dates: start: 202308
  7. VABYSMO [Concomitant]
     Active Substance: FARICIMAB-SVOA
     Indication: Neovascular age-related macular degeneration
     Dosage: RIGHT EYE
     Route: 065
     Dates: start: 202310
  8. VABYSMO [Concomitant]
     Active Substance: FARICIMAB-SVOA
     Dosage: VABYSMO X 5 OD (RIGHT EYE)
     Route: 065
     Dates: start: 202311, end: 202403
  9. VABYSMO [Concomitant]
     Active Substance: FARICIMAB-SVOA
     Dosage: RIGHT EYE
     Route: 065
     Dates: start: 202405
  10. VABYSMO [Concomitant]
     Active Substance: FARICIMAB-SVOA
     Dosage: RIGHT EYE
     Route: 065
     Dates: start: 202406
  11. VABYSMO [Concomitant]
     Active Substance: FARICIMAB-SVOA
     Dosage: RIGHT EYE
     Route: 065
     Dates: start: 20240729
  12. VABYSMO [Concomitant]
     Active Substance: FARICIMAB-SVOA
     Dosage: RIGHT EYE
     Route: 065
     Dates: start: 20240919
  13. ELIQUIS [Concomitant]
     Active Substance: APIXABAN
     Indication: Product used for unknown indication
     Route: 065
  14. GLIPIZIDE [Concomitant]
     Active Substance: GLIPIZIDE
     Indication: Product used for unknown indication
     Route: 065
  15. IBUPROFEN [Concomitant]
     Active Substance: IBUPROFEN
     Indication: Product used for unknown indication
     Route: 065
  16. LISINOPRIL [Concomitant]
     Active Substance: LISINOPRIL
     Indication: Product used for unknown indication
     Route: 065
  17. LOVASTATIN [Concomitant]
     Active Substance: LOVASTATIN
     Indication: Product used for unknown indication
     Route: 065
  18. METFORMIN [Concomitant]
     Active Substance: METFORMIN HYDROCHLORIDE
     Indication: Product used for unknown indication
     Route: 065
  19. MINERALS\VITAMINS [Concomitant]
     Active Substance: MINERALS\VITAMINS
     Indication: Product used for unknown indication
     Route: 065
  20. VITAMIN B12 [Concomitant]
     Active Substance: CYANOCOBALAMIN
     Indication: Product used for unknown indication
     Route: 065

REACTIONS (3)
  - Chorioretinitis [Unknown]
  - Vitritis [Not Recovered/Not Resolved]
  - Eye haemorrhage [Unknown]
